FAERS Safety Report 7635864-1 (Version None)
Quarter: 2011Q3

REPORT INFORMATION
  Report Type: 
  Country: None (occurrence: None)
  Receive Date: 20110726
  Receipt Date: 20110720
  Transmission Date: 20111222
  Serious: Yes (Death)
  Sender: FDA-Public Use
  Company Number: AU-ROXANE LABORATORIES, INC.-2011-RO-01014RO

PATIENT
  Age: 37 Year

DRUGS (4)
  1. IBUPROFEN [Suspect]
  2. OLANZAPINE [Suspect]
  3. METHADON AMIDONE HCL TAB [Suspect]
     Indication: DRUG WITHDRAWAL MAINTENANCE THERAPY
  4. DRONABINOL [Suspect]

REACTIONS (1)
  - TOXICITY TO VARIOUS AGENTS [None]
